FAERS Safety Report 16027238 (Version 6)
Quarter: 2019Q3

REPORT INFORMATION
  Report Type: Report from Study
  Country: None (occurrence: JP)
  Receive Date: 20190303
  Receipt Date: 20190709
  Transmission Date: 20191004
  Serious: Yes (Death)
  Sender: FDA-Public Use
  Company Number: JP-ABBVIE-19S-087-2687465-00

PATIENT
  Age: 64 Year
  Sex: Male
  Weight: 68 kg

DRUGS (4)
  1. DUODOPA [Suspect]
     Active Substance: CARBIDOPA\LEVODOPA
     Indication: PARKINSON^S DISEASE
     Dosage: MD: 18 ML CD: 4.9 ML/HR ? 15 HRS ED: 1.0 ML/UNIT ? 1
     Route: 050
     Dates: start: 20171228, end: 20190228
  2. ROTIGOTINE [Concomitant]
     Active Substance: ROTIGOTINE
     Indication: PARKINSON^S DISEASE
     Dosage: PRN
     Route: 062
  3. APOMORPHINE HYDROCHLORIDE HYDRATE [Concomitant]
     Indication: PARKINSON^S DISEASE
     Route: 058
     Dates: start: 20180829
  4. ROTIGOTINE [Concomitant]
     Active Substance: ROTIGOTINE
     Dosage: PRN
     Route: 062
     Dates: start: 20180104

REACTIONS (11)
  - Acute myocardial infarction [Fatal]
  - Device occlusion [Unknown]
  - Product storage error [Unknown]
  - Product use issue [Unknown]
  - Hallucination, visual [Unknown]
  - Stoma site pain [Unknown]
  - Euphoric mood [Unknown]
  - Cardio-respiratory arrest [Fatal]
  - Incorrect route of product administration [Unknown]
  - Hypersexuality [Unknown]
  - Agitation [Unknown]

NARRATIVE: CASE EVENT DATE: 20180701
